FAERS Safety Report 9734107 (Version 2)
Quarter: 2013Q4

REPORT INFORMATION
  Report Type: Report from Study
  Country: ZA (occurrence: ZA)
  Receive Date: 20131205
  Receipt Date: 20131205
  Transmission Date: 20140711
  Serious: Yes (Hospitalization)
  Sender: FDA-Public Use
  Company Number: ZA-CELGENEUS-143-C5013-11113567

PATIENT
  Age: 72 Year
  Sex: Male
  Weight: 69.2 kg

DRUGS (2)
  1. CHLORAMBUCIL [Suspect]
     Indication: CHRONIC LYMPHOCYTIC LEUKAEMIA
     Route: 065
     Dates: start: 20110516
  2. CHLORAMBUCIL [Suspect]
     Dosage: 54 MILLIGRAM
     Route: 065
     Dates: start: 20111107, end: 20111219

REACTIONS (6)
  - Basosquamous carcinoma of skin [Recovered/Resolved]
  - Basosquamous carcinoma of skin [Recovered/Resolved]
  - Basosquamous carcinoma of skin [Recovered/Resolved]
  - Basosquamous carcinoma of skin [Recovered/Resolved]
  - Basosquamous carcinoma of skin [Recovered/Resolved]
  - Basosquamous carcinoma of skin [Recovered/Resolved]
